FAERS Safety Report 23188263 (Version 1)
Quarter: 2023Q4

REPORT INFORMATION
  Report Type: Spontaneous
  Country: US (occurrence: US)
  Receive Date: 20231115
  Receipt Date: 20231115
  Transmission Date: 20240109
  Serious: Yes (Other)
  Sender: FDA-Public Use
  Company Number: US-PFIZER INC-PV202300183896

PATIENT
  Age: 69 Year
  Sex: Female
  Weight: 58.05 kg

DRUGS (1)
  1. TALZENNA [Suspect]
     Active Substance: TALAZOPARIB TOSYLATE
     Indication: Breast cancer female
     Dosage: 0.5 MG, DAILY (ONCE DAILY AT APPROXIMATELY THE SAME TIME EACH DAY)
     Route: 048

REACTIONS (2)
  - Leukopenia [Unknown]
  - Anaemia [Unknown]
